FAERS Safety Report 5285136-8 (Version None)
Quarter: 2007Q2

REPORT INFORMATION
  Report Type: 
  Country: None (occurrence: None)
  Receive Date: 20070403
  Receipt Date: 20070327
  Transmission Date: 20071010
  Serious: Yes (Hospitalization, Other)
  Sender: FDA-Public Use
  Company Number: PT-ABBOTT-07P-163-0363227-00

PATIENT
  Age: 17 Year
  Sex: Female

DRUGS (2)
  1. CLARITHROMYCIN [Suspect]
     Indication: INFLUENZA
     Route: 065
  2. BETAMETHASONE [Suspect]
     Indication: INFLUENZA
     Route: 030

REACTIONS (1)
  - MANIA [None]
